FAERS Safety Report 11520819 (Version 2)
Quarter: 2016Q3

REPORT INFORMATION
  Report Type: Spontaneous
  Country: US (occurrence: US)
  Receive Date: 20150918
  Receipt Date: 20160818
  Transmission Date: 20161109
  Serious: Yes (Hospitalization, Other)
  Sender: FDA-Public Use
  Company Number: US-SA-2015SA140087

PATIENT
  Age: 24 Month
  Sex: Male
  Weight: 10.4 kg

DRUGS (4)
  1. BUMEX [Concomitant]
     Active Substance: BUMETANIDE
  2. LUMIZYME [Suspect]
     Active Substance: ALGLUCOSIDASE ALFA
     Indication: GLYCOGEN STORAGE DISEASE TYPE II
     Dosage: 200 MG IN 50 ML NORMAL SALINE
     Route: 041
     Dates: start: 2015
  3. BUMEX [Concomitant]
     Active Substance: BUMETANIDE
  4. BENADRYL [Concomitant]
     Active Substance: DIPHENHYDRAMINE HYDROCHLORIDE
     Indication: PREMEDICATION
     Dosage: LIQUID, THROUGH THE G-TUBE

REACTIONS (5)
  - Bacterial tracheitis [Unknown]
  - Tachypnoea [Unknown]
  - Rash [Unknown]
  - Increased bronchial secretion [Unknown]
  - Oedema [Unknown]
